FAERS Safety Report 10415430 (Version 1)
Quarter: 2014Q3

REPORT INFORMATION
  Report Type: Spontaneous
  Country: US (occurrence: None)
  Receive Date: 20140827
  Receipt Date: 20140827
  Transmission Date: 20150326
  Serious: Yes (Hospitalization)
  Sender: FDA-Public Use
  Company Number: None

PATIENT
  Age: 87 Year
  Sex: Male
  Weight: 71.4 kg

DRUGS (1)
  1. TRIAMCINOLONE [Suspect]
     Active Substance: TRIAMCINOLONE
     Indication: OSTEOARTHRITIS
     Route: 050
     Dates: start: 20140505, end: 20140505

REACTIONS (3)
  - Arthralgia [None]
  - Haemarthrosis [None]
  - International normalised ratio increased [None]

NARRATIVE: CASE EVENT DATE: 20140605
